FAERS Safety Report 4440458-5 (Version None)
Quarter: 2004Q3

REPORT INFORMATION
  Report Type: 
  Country: None (occurrence: None)
  Receive Date: 20040801
  Receipt Date: 20040801
  Transmission Date: 20050211
  Serious: Yes (Other)
  Sender: FDA-Public Use
  Company Number: None

PATIENT
  Sex: Male
  Weight: 67.1324 kg

DRUGS (2)
  1. GLUCOVANCE [Suspect]
     Indication: DIABETES MELLITUS
     Dosage: 5/500 TWO BID
     Dates: start: 20040527
  2. PAXIL [Concomitant]

REACTIONS (2)
  - ABDOMINAL PAIN [None]
  - DIARRHOEA [None]
